FAERS Safety Report 14275308 (Version 1)
Quarter: 2017Q4

REPORT INFORMATION
  Report Type: Spontaneous
  Country: US (occurrence: US)
  Receive Date: 20171211
  Receipt Date: 20171211
  Transmission Date: 20180321
  Serious: Yes (Other)
  Sender: FDA-Public Use
  Company Number: US-OTSUKA-DJ20102047

PATIENT
  Sex: Female

DRUGS (1)
  1. ABILIFY [Suspect]
     Active Substance: ARIPIPRAZOLE
     Indication: BIPOLAR DISORDER
     Dosage: 30 MG, UNK
     Route: 065
     Dates: start: 200609

REACTIONS (4)
  - Abortion spontaneous [Unknown]
  - White blood cell count increased [Unknown]
  - Maternal exposure during pregnancy [Unknown]
  - Coma [Unknown]
